FAERS Safety Report 8484771-3 (Version None)
Quarter: 2012Q3

REPORT INFORMATION
  Report Type: 
  Country: None (occurrence: None)
  Receive Date: 20120703
  Receipt Date: 20120622
  Transmission Date: 20120928
  Serious: Yes (Hospitalization)
  Sender: FDA-Public Use
  Company Number: FR-US-EMD SERONO, INC.-7142718

PATIENT
  Age: 44 Year
  Sex: Female

DRUGS (2)
  1. REBIF [Suspect]
     Indication: MULTIPLE SCLEROSIS
     Route: 058
     Dates: start: 20111019, end: 20120618
  2. ANTIHYPERTENSIVE (NOS) [Concomitant]
     Indication: HYPERTENSION

REACTIONS (4)
  - MUSCULAR WEAKNESS [None]
  - DRUG INEFFECTIVE [None]
  - TOOTH INFECTION [None]
  - PYREXIA [None]
